FAERS Safety Report 18438037 (Version 1)
Quarter: 2020Q4

REPORT INFORMATION
  Report Type: Spontaneous
  Country: US (occurrence: US)
  Receive Date: 20201028
  Receipt Date: 20201028
  Transmission Date: 20210114
  Serious: No
  Sender: FDA-Public Use
  Company Number: US-TAKEDA-US202033295

PATIENT
  Age: 50 Year
  Sex: Female

DRUGS (1)
  1. TAKHZYRO [Suspect]
     Active Substance: LANADELUMAB-FLYO
     Indication: HEREDITARY ANGIOEDEMA
     Dosage: UNKNOWN, ONCE A MONTH
     Route: 050

REACTIONS (8)
  - Feeling abnormal [Unknown]
  - Anxiety [Unknown]
  - Injection site urticaria [Unknown]
  - Dizziness [Unknown]
  - Injection site rash [Unknown]
  - Hereditary angioedema [Unknown]
  - Injection site pain [Unknown]
  - Inappropriate schedule of product administration [Unknown]
